FAERS Safety Report 15842866 (Version 2)
Quarter: 2019Q1

REPORT INFORMATION
  Report Type: Spontaneous
  Country: JP (occurrence: JP)
  Receive Date: 20190118
  Receipt Date: 20190129
  Transmission Date: 20190417
  Serious: No
  Sender: FDA-Public Use
  Company Number: JP-JT-EVA201900088KERYXP-001

PATIENT
  Sex: Female
  Weight: 103 kg

DRUGS (32)
  1. TEPRENONE [Concomitant]
     Active Substance: TEPRENONE
     Indication: GASTRITIS PROPHYLAXIS
     Dosage: 50 MG, TID
     Route: 048
     Dates: start: 20170629
  2. CATLEP [Concomitant]
     Active Substance: INDOMETHACIN
     Indication: LUMBAR SPINAL STENOSIS
     Dosage: UNK
     Route: 062
     Dates: start: 20170518
  3. NEXIUM [Concomitant]
     Active Substance: ESOMEPRAZOLE MAGNESIUM
     Indication: GASTRITIS PROPHYLAXIS
     Dosage: 20 MG, QD
     Route: 048
     Dates: start: 20160429
  4. FUROSEMIDE. [Concomitant]
     Active Substance: FUROSEMIDE
     Indication: OEDEMA
     Dosage: UNK UNK, TID
     Route: 048
     Dates: start: 20161028
  5. OPALMON [Concomitant]
     Active Substance: LIMAPROST
     Indication: LUMBAR SPINAL STENOSIS
     Dosage: 5 MICRO-G, TID
     Route: 048
     Dates: start: 20170518
  6. WARFARIN                           /00014803/ [Concomitant]
     Active Substance: WARFARIN
     Indication: ATRIAL FIBRILLATION
     Dosage: 1.5 MG, QD
     Route: 048
     Dates: start: 20180426
  7. BELSOMRA [Concomitant]
     Active Substance: SUVOREXANT
     Indication: INSOMNIA
     Dosage: 15 MG, QD
     Route: 048
     Dates: start: 20180524
  8. CALONAL [Concomitant]
     Active Substance: ACETAMINOPHEN
     Indication: ANALGESIC THERAPY
     Dosage: 300 MG, UNK
     Route: 048
     Dates: start: 20170629
  9. ATORVASTATIN                       /01326102/ [Concomitant]
     Active Substance: ATORVASTATIN
     Indication: LIPIDS ABNORMAL
     Dosage: 10 MG, QD
     Route: 048
  10. LOQOA [Concomitant]
     Indication: SPINAL OSTEOARTHRITIS
     Dosage: UNK
     Route: 062
     Dates: start: 20180201
  11. ARTIST [Concomitant]
     Active Substance: CARVEDILOL
     Indication: HYPERTENSION
     Dosage: 10 MG, BID
     Route: 048
     Dates: start: 20180622
  12. RHYTHMY [Concomitant]
     Active Substance: RILMAZAFONE HYDROCHLORIDE
     Indication: INSOMNIA
     Dosage: 1 MG, QD
     Route: 048
     Dates: start: 20180621, end: 20190105
  13. FLUITRAN [Concomitant]
     Active Substance: TRICHLORMETHIAZIDE
     Indication: OEDEMA
     Dosage: 4 MG, QD
     Route: 048
     Dates: start: 20170224
  14. FRANDOL S [Concomitant]
     Active Substance: ISOSORBIDE DINITRATE
     Indication: ANGINA PECTORIS
     Dosage: 40 MG, QD
     Route: 062
  15. ZOLOFT [Concomitant]
     Active Substance: SERTRALINE HYDROCHLORIDE
     Indication: DEPRESSION
     Dosage: 25 MG, QD
     Route: 048
     Dates: start: 20170406
  16. MAGNESIUM OXIDE. [Concomitant]
     Active Substance: MAGNESIUM OXIDE
     Indication: CONSTIPATION
     Dosage: 330 MG, QD
     Route: 048
     Dates: start: 20170203
  17. CALTAN [Concomitant]
     Active Substance: CALCIUM CARBONATE
     Indication: HYPERPHOSPHATAEMIA
     Dosage: 500 MG, TID
     Route: 048
     Dates: start: 20180329
  18. ALESION [Concomitant]
     Active Substance: EPINASTINE HYDROCHLORIDE
     Indication: CONJUNCTIVITIS ALLERGIC
     Dosage: UNK, QID
     Route: 047
     Dates: start: 201508
  19. LANTUS XR [Concomitant]
     Active Substance: INSULIN GLARGINE
     Indication: DIABETES MELLITUS
     Dosage: 10 IU, QD
     Route: 058
     Dates: start: 20181109
  20. RIONA [Suspect]
     Active Substance: FERRIC CITRATE ANHYDROUS
     Indication: HYPERPHOSPHATAEMIA
     Dosage: 250 MG, QD
     Route: 048
     Dates: start: 20171012, end: 20190105
  21. FEBURIC [Concomitant]
     Active Substance: FEBUXOSTAT
     Indication: HYPERURICAEMIA
     Dosage: 10 MG, QD
     Route: 048
     Dates: start: 20170407
  22. TRANSAMIN [Concomitant]
     Active Substance: TRANEXAMIC ACID
     Indication: CHRONIC KIDNEY DISEASE
     Dosage: 250 MG, QD
     Route: 048
     Dates: start: 20161117
  23. CARTIN                             /00878601/ [Concomitant]
     Indication: CARNITINE DEFICIENCY
     Dosage: 250 MG, TID
     Route: 048
     Dates: start: 20170629
  24. FOSRENOL [Concomitant]
     Active Substance: LANTHANUM CARBONATE
     Indication: HYPERPHOSPHATAEMIA
     Dosage: 250 MG, TID
     Route: 048
     Dates: start: 20180301
  25. POVIDONE-IODINE. [Concomitant]
     Active Substance: POVIDONE-IODINE
     Indication: DEVICE RELATED INFECTION
     Dosage: UNK, QD
     Route: 061
     Dates: start: 20181025
  26. MICARDIS [Concomitant]
     Active Substance: TELMISARTAN
     Indication: HYPERTENSION
     Dosage: 40 MG, QD
     Route: 048
     Dates: start: 20170831
  27. RINDERON V [Concomitant]
     Active Substance: BETAMETHASONE VALERATE
     Indication: PRURITUS
     Dosage: UNK
     Route: 003
     Dates: start: 20180301
  28. INVESTIGATIONAL DRUG [Concomitant]
     Active Substance: INVESTIGATIONAL PRODUCT
     Indication: NEPHROGENIC ANAEMIA
     Dosage: 2 MG, QD
     Route: 048
     Dates: start: 20180301, end: 20190105
  29. VASOLAN                            /00014302/ [Concomitant]
     Active Substance: VERAPAMIL HYDROCHLORIDE
     Indication: ATRIAL FIBRILLATION
     Dosage: 40 MG, QID
     Route: 048
  30. SAMSCA [Concomitant]
     Active Substance: TOLVAPTAN
     Indication: OEDEMA
     Dosage: 15 MG, QD
     Route: 048
     Dates: start: 20161006
  31. ALFACALCIDOL [Concomitant]
     Active Substance: ALFACALCIDOL
     Indication: CHRONIC KIDNEY DISEASE
     Dosage: 0.5 MICRO-G, QD
     Route: 048
     Dates: start: 20171013
  32. REGPARA [Concomitant]
     Active Substance: CINACALCET HYDROCHLORIDE
     Indication: HYPERPARATHYROIDISM SECONDARY
     Dosage: 37.5 MG, QD
     Route: 048
     Dates: start: 20170427

REACTIONS (1)
  - No adverse event [Unknown]
